FAERS Safety Report 19961694 (Version 3)
Quarter: 2022Q1

REPORT INFORMATION
  Report Type: Spontaneous
  Country: US (occurrence: US)
  Receive Date: 20211018
  Receipt Date: 20220102
  Transmission Date: 20220424
  Serious: No
  Sender: FDA-Public Use
  Company Number: US-JNJFOC-20211027229

PATIENT
  Age: 78 Year
  Sex: Male

DRUGS (2)
  1. BALVERSA [Suspect]
     Active Substance: ERDAFITINIB
     Indication: Product used for unknown indication
     Dosage: 4 MG TAKE 2 TABLETS DAILY BY MOUTH ONCE DAILY
     Route: 048
     Dates: start: 20210816
  2. BALVERSA [Suspect]
     Active Substance: ERDAFITINIB
     Dosage: 4MG TAKE 2 TABLETS BY MOUTH ONCE DAILY
     Route: 048
     Dates: start: 20210817

REACTIONS (7)
  - Rash [Unknown]
  - Dermatitis [Unknown]
  - Burning sensation [Unknown]
  - Thermal burn [Unknown]
  - Skin exfoliation [Unknown]
  - Dry skin [Unknown]
  - Dry skin [Unknown]

NARRATIVE: CASE EVENT DATE: 20210101
